FAERS Safety Report 9408872 (Version 3)
Quarter: 2013Q4

REPORT INFORMATION
  Report Type: Report from Study
  Country: JP (occurrence: JP)
  Receive Date: 20130719
  Receipt Date: 20131028
  Transmission Date: 20140711
  Serious: Yes (Hospitalization, Other)
  Sender: FDA-Public Use
  Company Number: JP-ROCHE-1249326

PATIENT
  Age: 75 Year
  Sex: Female
  Weight: 108 kg

DRUGS (16)
  1. OMALIZUMAB [Suspect]
     Indication: ASTHMA
     Route: 058
     Dates: start: 20111011
  2. OMALIZUMAB [Suspect]
     Dosage: 11TH SHOT
     Route: 065
     Dates: start: 20120731
  3. OMALIZUMAB [Suspect]
     Route: 065
     Dates: start: 20120828
  4. KIPRES [Concomitant]
     Route: 065
     Dates: start: 20110410
  5. ROCALTROL [Concomitant]
     Route: 065
     Dates: start: 20111011
  6. AMLODIN [Concomitant]
     Route: 065
     Dates: start: 20111011
  7. PANALDINE [Concomitant]
     Route: 065
     Dates: start: 20111011
  8. ALESION [Concomitant]
     Route: 065
     Dates: start: 20110410
  9. MUCOSTA [Concomitant]
     Route: 065
     Dates: start: 20111011
  10. ITRIZOLE [Concomitant]
     Route: 065
     Dates: start: 20111011
  11. MAGMITT [Concomitant]
     Route: 065
     Dates: start: 20120531
  12. LAC-B [Concomitant]
  13. CEREKINON [Concomitant]
  14. BUSCOPAN [Concomitant]
  15. PULMICORT [Concomitant]
     Route: 065
     Dates: start: 20110410, end: 20120829
  16. SEREVENT [Concomitant]
     Route: 065
     Dates: start: 20110410

REACTIONS (9)
  - Interstitial lung disease [Recovering/Resolving]
  - Pulmonary tuberculosis [Recovering/Resolving]
  - Cell marker increased [Unknown]
  - Aspergillus test positive [Unknown]
  - Lymphocyte count increased [Unknown]
  - Cough [Unknown]
  - Pyrexia [Unknown]
  - Productive cough [Unknown]
  - Feeling abnormal [Unknown]
